FAERS Safety Report 20436485 (Version 1)
Quarter: 2022Q1

REPORT INFORMATION
  Report Type: Report from Study
  Country: AU (occurrence: AU)
  Receive Date: 20220207
  Receipt Date: 20220207
  Transmission Date: 20220423
  Serious: Yes (Hospitalization, Disabling, Other)
  Sender: FDA-Public Use
  Company Number: AU-AMGEN-AUSSL2021190019

PATIENT
  Age: 73 Year
  Sex: Male

DRUGS (4)
  1. KYPROLIS [Suspect]
     Active Substance: CARFILZOMIB
     Indication: Plasma cell myeloma
     Dosage: 56 MILLIGRAM/SQ. METER D1,2,,8,9,15+16, 28DAYS PER CYCLE
     Route: 042
     Dates: start: 20211006
  2. KYPROLIS [Suspect]
     Active Substance: CARFILZOMIB
     Dosage: 110 MILLIGRAM, UNK
     Route: 042
     Dates: start: 20210621, end: 20220107
  3. DEXAMETHASONE [Suspect]
     Active Substance: DEXAMETHASONE
     Indication: Plasma cell myeloma
     Dosage: UNK UNK, UNK
     Route: 065
     Dates: start: 20211006
  4. CARFILZOMIB [Concomitant]
     Active Substance: CARFILZOMIB
     Indication: Product used for unknown indication
     Route: 065

REACTIONS (2)
  - Plasma cell myeloma [Unknown]
  - Femur fracture [Recovered/Resolved with Sequelae]

NARRATIVE: CASE EVENT DATE: 20211101
